FAERS Safety Report 5793457-5 (Version None)
Quarter: 2008Q2

REPORT INFORMATION
  Report Type: 
  Country: None (occurrence: None)
  Receive Date: 20080627
  Receipt Date: 20080616
  Transmission Date: 20081010
  Serious: Yes (Other)
  Sender: FDA-Public Use
  Company Number: JP-MERCK-0805USA02109

PATIENT
  Age: 28 Year
  Sex: Female

DRUGS (13)
  1. PRIMAXIN [Suspect]
     Indication: SEPSIS
     Route: 042
  2. CHLORAMPHENICOL [Concomitant]
     Route: 067
  3. ULINASTATIN [Concomitant]
     Route: 067
  4. RITODRINE HYDROCHLORIDE [Concomitant]
     Route: 042
  5. PIPERACILLIN SODIUM [Concomitant]
     Route: 042
  6. MAGNESIUM SULFATE [Concomitant]
     Route: 042
  7. MAGNESIUM SULFATE [Concomitant]
     Route: 042
  8. FIRSTCIN [Concomitant]
     Route: 042
  9. FLUMARIN [Concomitant]
     Route: 042
  10. GLOBULIN, IMMUNE [Concomitant]
     Route: 042
  11. GLOBULIN, IMMUNE [Concomitant]
     Route: 042
  12. GABEXATE MESYLATE [Concomitant]
     Route: 042
  13. INSULIN [Concomitant]
     Indication: GESTATIONAL DIABETES
     Route: 058

REACTIONS (10)
  - CAESAREAN SECTION [None]
  - DRUG EXPOSURE DURING PREGNANCY [None]
  - GENITAL HAEMORRHAGE [None]
  - GESTATIONAL DIABETES [None]
  - HYPERTHERMIA [None]
  - INFLAMMATION [None]
  - PANCYTOPENIA [None]
  - PYREXIA [None]
  - TACHYCARDIA [None]
  - UTERINE CONTRACTIONS ABNORMAL [None]
